FAERS Safety Report 12727305 (Version 1)
Quarter: 2016Q3

REPORT INFORMATION
  Report Type: Spontaneous
  Country: GB (occurrence: GB)
  Receive Date: 20160909
  Receipt Date: 20160909
  Transmission Date: 20161109
  Serious: Yes (Hospitalization)
  Sender: FDA-Public Use
  Company Number: GB-TEVA-689240ACC

PATIENT
  Age: 43 Year
  Sex: Male

DRUGS (9)
  1. GABAPENTIN. [Concomitant]
     Active Substance: GABAPENTIN
  2. NIZATIDINE. [Concomitant]
     Active Substance: NIZATIDINE
  3. BACLOFEN. [Concomitant]
     Active Substance: BACLOFEN
  4. TRAMADOL. [Suspect]
     Active Substance: TRAMADOL
     Route: 048
  5. AMITRIPTYLINE [Concomitant]
     Active Substance: AMITRIPTYLINE
  6. BISOPROLOL [Concomitant]
     Active Substance: BISOPROLOL
  7. SPIRONOLACTONE. [Concomitant]
     Active Substance: SPIRONOLACTONE
  8. WARFARIN [Interacting]
     Active Substance: WARFARIN
     Route: 048
  9. RAMIPRIL. [Concomitant]
     Active Substance: RAMIPRIL

REACTIONS (5)
  - Haemarthrosis [Recovering/Resolving]
  - Infected skin ulcer [Unknown]
  - Upper gastrointestinal haemorrhage [Unknown]
  - International normalised ratio increased [Unknown]
  - Labelled drug-drug interaction medication error [Unknown]
